FAERS Safety Report 9499670 (Version 1)
Quarter: 2013Q3

REPORT INFORMATION
  Report Type: Spontaneous
  Country: GB (occurrence: None)
  Receive Date: 20130903
  Receipt Date: 20130903
  Transmission Date: 20140515
  Serious: Yes (Disabling)
  Sender: FDA-Public Use
  Company Number: AUR-APL-2013-07134

PATIENT
  Age: 53 Year
  Sex: Male

DRUGS (9)
  1. LAMOTRIGINE (LAMOTRIGINE) [Suspect]
     Indication: PRODUCT USED FOR UNKNOWN INDICATION
     Dosage: 400 MG (200 MG, 2 IN 1 D) UNKNOWN
  2. ARIPIPRAZOLE (ARIPIPRAZOLE) [Suspect]
     Dosage: 15 MG (15 MG, 1 IN 1 D), UNKNOWN
  3. LITHIUM (LITHIUM) [Suspect]
     Dosage: 1000 MG (1000 MG, 1 IN 1 D), UNKNOWN
  4. VENLAFAXINE (VENLAFAXINE) [Suspect]
     Dosage: 150 MG (150 MG, 1 IN 1 D) UNKNOWN
  5. ATORVASTATIN (ATORVASTATIN) [Concomitant]
  6. HUMALOG (INSULIN LISPRO) [Concomitant]
  7. INDAPAMIDE (INDAPAMIDE) [Concomitant]
  8. INSULIN GLARGINE (INSULIN GLARGINE) [Concomitant]
  9. PERINDOPRIL (PERINDOPRIL) [Concomitant]

REACTIONS (5)
  - Tremor [None]
  - Fall [None]
  - Hyperhidrosis [None]
  - Balance disorder [None]
  - Dysphagia [None]
